FAERS Safety Report 15155354 (Version 1)
Quarter: 2018Q3

REPORT INFORMATION
  Report Type: Spontaneous
  Country: US (occurrence: US)
  Receive Date: 20180620
  Receipt Date: 20180620
  Transmission Date: 20181010
  Serious: Yes (Other)
  Sender: FDA-Public Use
  Company Number: None

PATIENT
  Age: 55 Year
  Sex: Female
  Weight: 55.35 kg

DRUGS (9)
  1. OXYBUTYNIN CL ER 10MG TABLETS, SUBSITUTED FOR DITROPAN XL 10MG [Suspect]
     Active Substance: OXYBUTYNIN CHLORIDE
     Indication: BLADDER DISORDER
     Dosage: ?          QUANTITY:90 DF DOSAGE FORM;?
     Route: 048
     Dates: start: 20180606, end: 20180619
  2. BUPROPION. [Concomitant]
     Active Substance: BUPROPION
  3. DIAZAPAM [Concomitant]
     Active Substance: DIAZEPAM
  4. METOPROLOL. [Concomitant]
     Active Substance: METOPROLOL
  5. ONE A DAY VITAMINS [Concomitant]
  6. ZANTAC [Concomitant]
     Active Substance: RANITIDINE HYDROCHLORIDE
  7. CYMBALTA [Concomitant]
     Active Substance: DULOXETINE HYDROCHLORIDE
  8. LIPITOR [Concomitant]
     Active Substance: ATORVASTATIN CALCIUM
  9. LISINIPRIL [Concomitant]
     Active Substance: LISINOPRIL

REACTIONS (13)
  - Fall [None]
  - Dyspepsia [None]
  - Loss of consciousness [None]
  - Abdominal pain upper [None]
  - Balance disorder [None]
  - Diplopia [None]
  - Headache [None]
  - Anxiety [None]
  - Vomiting [None]
  - Depression [None]
  - Hallucination [None]
  - Altered state of consciousness [None]
  - Insomnia [None]

NARRATIVE: CASE EVENT DATE: 20180606
